FAERS Safety Report 4282017-3 (Version None)
Quarter: 2004Q1

REPORT INFORMATION
  Report Type: 
  Country: None (occurrence: None)
  Receive Date: 20040128
  Receipt Date: 20040113
  Transmission Date: 20041129
  Serious: Yes (Hospitalization)
  Sender: FDA-Public Use
  Company Number: 2004-06550

PATIENT
  Age: 61 Year
  Sex: Male

DRUGS (4)
  1. TENOFOVIR DF [Suspect]
     Indication: HIV INFECTION
     Dosage: 300 MG QD PO
     Route: 048
     Dates: start: 20030414, end: 20030914
  2. ZERIT [Concomitant]
  3. ZIAGEN [Concomitant]
  4. KALETRA [Concomitant]

REACTIONS (6)
  - ACIDOSIS [None]
  - ASTHENIA [None]
  - DYSPNOEA [None]
  - GLUCOSE URINE [None]
  - MARKEDLY REDUCED DIETARY INTAKE [None]
  - NAUSEA [None]
